FAERS Safety Report 9378444 (Version 1)
Quarter: 2013Q3

REPORT INFORMATION
  Report Type: Spontaneous
  Country: US (occurrence: US)
  Receive Date: 20130701
  Receipt Date: 20130701
  Transmission Date: 20140515
  Serious: No
  Sender: FDA-Public Use
  Company Number: US-009507513-1306USA008618

PATIENT
  Age: 57 Year
  Sex: Female

DRUGS (2)
  1. VICTRELIS [Suspect]
     Indication: CHRONIC HEPATITIS C
     Dosage: 800 MG, TID
     Route: 048
     Dates: start: 20130508, end: 20130603
  2. PEGASYS [Suspect]

REACTIONS (2)
  - Transient ischaemic attack [Unknown]
  - Eye disorder [Unknown]
